FAERS Safety Report 8193122-3 (Version None)
Quarter: 2012Q1

REPORT INFORMATION
  Report Type: 
  Country: None (occurrence: None)
  Receive Date: 20120308
  Receipt Date: 20120308
  Transmission Date: 20120608
  Serious: Yes (Other)
  Sender: FDA-Public Use
  Company Number: None

PATIENT
  Age: 38 Year
  Sex: Female
  Weight: 81.646 kg

DRUGS (2)
  1. NIGHTTIME LUBRICANT EYE OINTMENT [Suspect]
     Indication: DRY EYE
     Dosage: SMALL AMOUNT ON LOWER LIDS
     Route: 061
     Dates: start: 20120305, end: 20120308
  2. NIGHTTIME LUBRICANT EYE OINTMENT [Suspect]
     Indication: SJOGREN'S SYNDROME
     Dosage: SMALL AMOUNT ON LOWER LIDS
     Route: 061
     Dates: start: 20120305, end: 20120308

REACTIONS (1)
  - HORDEOLUM [None]
